FAERS Safety Report 7686676-4 (Version None)
Quarter: 2011Q3

REPORT INFORMATION
  Report Type: 
  Country: None (occurrence: None)
  Receive Date: 20110816
  Receipt Date: 20110805
  Transmission Date: 20111222
  Serious: Yes (Life-Threatening, Hospitalization, Other)
  Sender: FDA-Public Use
  Company Number: US-BAYER-2011-009065

PATIENT
  Age: 38 Year
  Sex: Female
  Weight: 54.422 kg

DRUGS (14)
  1. DROSPIRENONE AND ETHINYL ESTRADIOL [Suspect]
     Indication: CONTRACEPTION
  2. DROSPIRENONE AND ETHINYL ESTRADIOL [Suspect]
  3. TRIAMTERENE AND HYDROCHLOROTHIAZIDE [Concomitant]
     Route: 048
  4. LASIX [Concomitant]
  5. DROSPIRENONE AND ETHINYL ESTRADIOL [Suspect]
     Indication: ACNE
     Dosage: UNK
     Dates: start: 20030101, end: 20090901
  6. YASMIN [Suspect]
     Indication: ACNE
     Dosage: UNK
     Dates: start: 20030101, end: 20090901
  7. DROSPIRENONE AND ETHINYL ESTRADIOL [Suspect]
     Indication: PREMENSTRUAL SYNDROME
  8. YASMIN [Suspect]
     Indication: CONTRACEPTION
  9. YASMIN [Suspect]
     Indication: PREMENSTRUAL SYNDROME
  10. YAZ [Suspect]
     Indication: ACNE
     Dosage: UNK
     Dates: start: 20030101, end: 20090901
  11. YASMIN [Suspect]
  12. YAZ [Suspect]
     Indication: CONTRACEPTION
  13. YAZ [Suspect]
  14. YAZ [Suspect]
     Indication: PREMENSTRUAL SYNDROME

REACTIONS (4)
  - PAIN [None]
  - DEEP VEIN THROMBOSIS [None]
  - MAY-THURNER SYNDROME [None]
  - PULMONARY EMBOLISM [None]
